FAERS Safety Report 5479788-7 (Version None)
Quarter: 2007Q4

REPORT INFORMATION
  Report Type: 
  Country: None (occurrence: None)
  Receive Date: 20071003
  Receipt Date: 20070911
  Transmission Date: 20080405
  Serious: Yes (Hospitalization)
  Sender: FDA-Public Use
  Company Number: 6304 / E2B_00010045

PATIENT
  Age: 41 Year
  Sex: Female

DRUGS (8)
  1. METFORMIN [Suspect]
     Indication: TYPE 2 DIABETES MELLITUS
     Dates: start: 20040101, end: 20070127
  2. METFORMIN [Suspect]
     Indication: TYPE 2 DIABETES MELLITUS
     Dates: start: 20051129
  3. METFORMIN [Suspect]
     Indication: TYPE 2 DIABETES MELLITUS
     Dates: start: 20070131
  4. BLINDED STUDY MEDICATION [Suspect]
     Dates: start: 20051129, end: 20070127
  5. BLINDED STUDY MEDICATION [Suspect]
     Dates: start: 20040101
  6. BLINDED STUDY MEDICATION [Suspect]
     Dates: start: 20070131
  7. ATACAND [Concomitant]
  8. PHENERGAN HCL [Concomitant]

REACTIONS (3)
  - ANAEMIA [None]
  - OVARIAN MASS [None]
  - PELVIC MASS [None]
